FAERS Safety Report 4617565-7 (Version None)
Quarter: 2005Q1

REPORT INFORMATION
  Report Type: 
  Country: None (occurrence: None)
  Receive Date: 20050322
  Receipt Date: 20050311
  Transmission Date: 20050727
  Serious: Yes (Other)
  Sender: FDA-Public Use
  Company Number: 2004115232

PATIENT
  Age: 49 Year
  Sex: Male

DRUGS (4)
  1. NORVASC [Suspect]
     Indication: HYPERTENSION
     Dosage: 2.5 MG, ORAL; 5 MG ORAL
     Route: 048
     Dates: start: 20041022, end: 20041118
  2. NORVASC [Suspect]
     Indication: HYPERTENSION
     Dosage: 2.5 MG, ORAL; 5 MG ORAL
     Route: 048
     Dates: start: 20040924
  3. HYDROCHLOROTHIAZIDE [Concomitant]
  4. COTYLENOL (CHLORPHENAMINE MALEATE, DEXTROMETHORPHAN HYDROBROMIDE, PARA [Concomitant]

REACTIONS (2)
  - CONDITION AGGRAVATED [None]
  - HYPERTENSION [None]
